FAERS Safety Report 11729294 (Version 1)
Quarter: 2015Q4

REPORT INFORMATION
  Report Type: Spontaneous
  Country: US (occurrence: US)
  Receive Date: 20151112
  Receipt Date: 20151112
  Transmission Date: 20160304
  Serious: Yes (Other)
  Sender: FDA-Public Use
  Company Number: PHHY2014US177248

PATIENT
  Sex: Female
  Weight: 76.9 kg

DRUGS (2)
  1. INLYTA [Suspect]
     Active Substance: AXITINIB
     Indication: PRODUCT USED FOR UNKNOWN INDICATION
     Dosage: 5 MG, UNK
     Route: 065
     Dates: start: 201506
  2. VOTRIENT [Suspect]
     Active Substance: PAZOPANIB HYDROCHLORIDE
     Indication: NEOPLASM MALIGNANT
     Dosage: 200 MG, U
     Route: 048
     Dates: start: 20140701, end: 20150619

REACTIONS (4)
  - Abdominal discomfort [Recovering/Resolving]
  - Malignant neoplasm progression [Unknown]
  - Drug ineffective [Unknown]
  - Diarrhoea [Recovering/Resolving]
